FAERS Safety Report 22614377 (Version 1)
Quarter: 2023Q2

REPORT INFORMATION
  Report Type: Report from Study
  Country: US (occurrence: None)
  Receive Date: 20230619
  Receipt Date: 20230619
  Transmission Date: 20230721
  Serious: Yes (Hospitalization)
  Sender: FDA-Public Use
  Company Number: US-ROCHE-3368208

PATIENT
  Age: 74 Year
  Sex: Female
  Weight: 79.1 kg

DRUGS (2)
  1. ATEZOLIZUMAB [Suspect]
     Active Substance: ATEZOLIZUMAB
     Indication: Squamous cell carcinoma of lung
     Dosage: LAST ADMINISTERED DATE: 22/SEP/2022
     Route: 041
     Dates: start: 20210129
  2. COBIMETINIB [Suspect]
     Active Substance: COBIMETINIB
     Indication: Squamous cell carcinoma of lung
     Dosage: LAST ADMINISTERED DATE: 22/SEP/2022
     Route: 048
     Dates: start: 20210129

REACTIONS (2)
  - Fall [Unknown]
  - Head injury [Unknown]

NARRATIVE: CASE EVENT DATE: 20221012
